FAERS Safety Report 19185008 (Version 1)
Quarter: 2021Q2

REPORT INFORMATION
  Report Type: Spontaneous
  Country: US (occurrence: US)
  Receive Date: 20210427
  Receipt Date: 20210427
  Transmission Date: 20210717
  Serious: No
  Sender: FDA-Public Use
  Company Number: None

PATIENT
  Sex: Male
  Weight: 83.25 kg

DRUGS (8)
  1. ONDANSETRON HCL [Concomitant]
     Active Substance: ONDANSETRON HYDROCHLORIDE
  2. NEUPOGEN [Concomitant]
     Active Substance: FILGRASTIM
  3. MORPHINE SULFATE ER BEADS [Concomitant]
  4. DEXAMETHASONE. [Concomitant]
     Active Substance: DEXAMETHASONE
  5. XPOVIO [Suspect]
     Active Substance: SELINEXOR
     Indication: PLASMA CELL MYELOMA
     Dosage: ?          OTHER FREQUENCY:ONCE WEEKLY ON TUE;?
     Route: 048
     Dates: start: 20210212, end: 20210422
  6. ACYCLOVIR. [Concomitant]
     Active Substance: ACYCLOVIR
  7. KLONOPIN [Concomitant]
     Active Substance: CLONAZEPAM
  8. CHILDRENS CHEWABLE ASPIRIN [Concomitant]
     Active Substance: ASPIRIN

REACTIONS (2)
  - Disease progression [None]
  - Plasma cell myeloma [None]
